FAERS Safety Report 10175444 (Version 2)
Quarter: 2014Q2

REPORT INFORMATION
  Report Type: Spontaneous
  Country: PL (occurrence: PL)
  Receive Date: 20140515
  Receipt Date: 20140515
  Transmission Date: 20141212
  Serious: Yes (Other)
  Sender: FDA-Public Use
  Company Number: PHHY2012PL092512

PATIENT
  Age: 31 Year
  Sex: Female
  Weight: 45 kg

DRUGS (11)
  1. OMALIZUMAB [Suspect]
     Indication: ASTHMA
     Dosage: 150 MG/MONTH
     Dates: start: 2006
  2. OMALIZUMAB [Suspect]
     Dates: start: 2007
  3. BUDESONIDE [Suspect]
     Dosage: 320 MG, BID
  4. FORMOTEROL [Suspect]
     Indication: ASTHMA
     Dosage: 48 UG,/D
  5. FORMOTEROL [Suspect]
     Dosage: 9 MG, BID
  6. PREDNISONE [Suspect]
     Indication: ASTHMA
     Dosage: 40 MG/D
     Dates: start: 2006
  7. PREDNISONE [Suspect]
     Dosage: 10 MG/D
  8. PREDNISONE [Suspect]
     Dosage: UPTO 40 MG/D
  9. SALBUTAMOL [Suspect]
     Indication: ASTHMA
  10. FLUTICASONE [Concomitant]
     Indication: ASTHMA
     Dosage: 1000 UG/D
  11. GLUCOCORTICOIDS [Concomitant]
     Route: 048

REACTIONS (3)
  - Abortion spontaneous [Unknown]
  - Asthma [Unknown]
  - Maternal exposure during pregnancy [Unknown]
